FAERS Safety Report 4451153-0 (Version None)
Quarter: 2004Q3

REPORT INFORMATION
  Report Type: 
  Country: None (occurrence: None)
  Receive Date: 20040915
  Receipt Date: 20040915
  Transmission Date: 20050211
  Serious: Yes (Hospitalization)
  Sender: FDA-Public Use
  Company Number: None

PATIENT
  Age: 70 Year
  Sex: Male
  Weight: 104.3273 kg

DRUGS (3)
  1. CARMUSTINE [Suspect]
     Indication: GLIOBLASTOMA
     Dosage: 80 MG/M2 = 193 MG CYCLE 1 8/5-8/7, CYCLE 2 9/30-10/2/02
     Dates: start: 20020805, end: 20020807
  2. CARMUSTINE [Suspect]
     Indication: GLIOBLASTOMA
     Dosage: 80 MG/M2 = 193 MG CYCLE 1 8/5-8/7, CYCLE 2 9/30-10/2/02
     Dates: start: 20020930, end: 20021002
  3. RADIATION THERAPY [Concomitant]

REACTIONS (4)
  - CONVULSION [None]
  - DIZZINESS [None]
  - MALAISE [None]
  - PNEUMONIA [None]
